FAERS Safety Report 9467746 (Version 1)
Quarter: 2013Q3

REPORT INFORMATION
  Report Type: Spontaneous
  Country: US (occurrence: None)
  Receive Date: 20130819
  Receipt Date: 20130819
  Transmission Date: 20140515
  Serious: Yes (Other)
  Sender: FDA-Public Use
  Company Number: None

PATIENT
  Age: 48 Year
  Sex: Female
  Weight: 58.06 kg

DRUGS (2)
  1. ALPRAZOLAM [Suspect]
     Indication: ANXIETY
     Dosage: ALPRAZOLAM?THREE TIMES DAILY?TAKEN BY MOUTH
     Route: 048
  2. ALPRAZOLAM [Suspect]
     Indication: PANIC REACTION
     Dosage: ALPRAZOLAM?THREE TIMES DAILY?TAKEN BY MOUTH
     Route: 048

REACTIONS (8)
  - Dizziness [None]
  - Vomiting [None]
  - Abdominal pain upper [None]
  - Diarrhoea [None]
  - Blood potassium decreased [None]
  - Nervousness [None]
  - Irritability [None]
  - Drug ineffective [None]
